FAERS Safety Report 6203401-4 (Version None)
Quarter: 2009Q2

REPORT INFORMATION
  Report Type: 
  Country: None (occurrence: None)
  Receive Date: 20090527
  Receipt Date: 20090428
  Transmission Date: 20091009
  Serious: Yes (Hospitalization, Other)
  Sender: FDA-Public Use
  Company Number: GB-ASTRAZENECA-2009GB01180

PATIENT
  Sex: Female

DRUGS (3)
  1. SYMBICORT [Suspect]
     Dosage: 200/6 UG; TWO PUFFS MORNING AND EVENING
     Route: 055
     Dates: start: 20070101
  2. SYMBICORT [Suspect]
     Dosage: 200/6 UG; 2 PUFFS IN BETWEEN
     Route: 055
     Dates: start: 20070101
  3. BLUE INHALER [Concomitant]

REACTIONS (4)
  - ASTHMA [None]
  - CHEST PAIN [None]
  - DYSPNOEA [None]
  - TRANSIENT ISCHAEMIC ATTACK [None]
